FAERS Safety Report 4916747-4 (Version None)
Quarter: 2006Q1

REPORT INFORMATION
  Report Type: 
  Country: None (occurrence: None)
  Receive Date: 20060214
  Receipt Date: 20060206
  Transmission Date: 20060701
  Serious: Yes (Other)
  Sender: FDA-Public Use
  Company Number: 2006018130

PATIENT
  Age: 42 Year
  Sex: Female
  Weight: 67 kg

DRUGS (2)
  1. GENOTROPIN [Suspect]
     Indication: HYPOPITUITARISM
     Dosage: 0.6 MG (0.6 MG, 1 IN 1 D), SUBCUTANEOUS
     Route: 058
     Dates: start: 20020515, end: 20051003
  2. LEVOTHYROXINE SODIUM [Concomitant]

REACTIONS (2)
  - PITUITARY CYST [None]
  - PITUITARY TUMOUR [None]
